FAERS Safety Report 4303445-3 (Version None)
Quarter: 2004Q1

REPORT INFORMATION
  Report Type: 
  Country: None (occurrence: None)
  Receive Date: 20040223
  Receipt Date: 20040218
  Transmission Date: 20041129
  Serious: Yes (Hospitalization)
  Sender: FDA-Public Use
  Company Number: TCI2004A00472

PATIENT
  Age: 81 Year
  Sex: Male

DRUGS (6)
  1. LEUPLIN FOR INJECTION KIT 3.75  (LEUPROLIDE ACETATE) [Suspect]
     Indication: PROSTATE CANCER
     Dosage: 3.75 MG (3.75 MG, 1 IN 28 D) SUBCUTANEOUS; SEE IMAGE
     Route: 058
     Dates: start: 20031118
  2. LEUPLIN FOR INJECTION KIT 3.75  (LEUPROLIDE ACETATE) [Suspect]
     Indication: PROSTATE CANCER
     Dosage: 3.75 MG (3.75 MG, 1 IN 28 D) SUBCUTANEOUS; SEE IMAGE
     Route: 058
     Dates: start: 20031203
  3. TAMULOSIN HYDROCHLORIDE (CAPSULES) [Concomitant]
  4. PRAZOSIN HYDROCHLORIDE (TABLETS) [Concomitant]
  5. MAGNESIUM OXIDE (MAG-LAX) (TABLETS) [Concomitant]
  6. BUFFERIN [Concomitant]

REACTIONS (6)
  - DEMENTIA [None]
  - GENERALISED ERYTHEMA [None]
  - RHABDOMYOLYSIS [None]
  - TOXIC SKIN ERUPTION [None]
  - TREATMENT NONCOMPLIANCE [None]
  - VIRAL INFECTION [None]
